FAERS Safety Report 5831682-5 (Version None)
Quarter: 2008Q3

REPORT INFORMATION
  Report Type: 
  Country: None (occurrence: None)
  Receive Date: 20080730
  Receipt Date: 20080716
  Transmission Date: 20090109
  Serious: Yes (Life-Threatening)
  Sender: FDA-Public Use
  Company Number: 2008AL008430

PATIENT
  Age: 79 Year
  Sex: Male
  Weight: 73.4827 kg

DRUGS (2)
  1. DIGOXIN [Suspect]
     Indication: ATRIAL FIBRILLATION
     Dosage: 0.25MG, 5 DAYS/WK, PO MAINTENANCE
     Route: 048
  2. DIGOXIN [Suspect]
     Dosage: 0.125MG 2 DAYS/WK, PO MAINTENANCE
     Route: 048

REACTIONS (4)
  - AMNESIA [None]
  - CARDIOACTIVE DRUG LEVEL INCREASED [None]
  - FALL [None]
  - LOSS OF CONSCIOUSNESS [None]
